FAERS Safety Report 9011026 (Version 1)
Quarter: 2013Q1

REPORT INFORMATION
  Report Type: Spontaneous
  Country: US (occurrence: US)
  Receive Date: 20130109
  Receipt Date: 20130109
  Transmission Date: 20140127
  Serious: No
  Sender: FDA-Public Use
  Company Number: US-ASTRAZENECA-2012SE96358

PATIENT
  Age: 77 Year
  Sex: Male
  Weight: 81.6 kg

DRUGS (5)
  1. ASPIRIN [Suspect]
     Route: 048
  2. SYMBICORT [Suspect]
     Indication: CHRONIC OBSTRUCTIVE PULMONARY DISEASE
     Dosage: 160/4.5, TWO PUFFS TWO TIMES A DAY
     Route: 055
     Dates: start: 201205
  3. PLAVIX [Concomitant]
     Indication: CARDIAC DISORDER
     Route: 048
     Dates: start: 20121108
  4. TERAZOSIN [Concomitant]
     Indication: PROSTATOMEGALY
     Route: 048
     Dates: start: 1999
  5. FINESTERIDE [Concomitant]
     Indication: PROSTATOMEGALY
     Route: 048
     Dates: start: 1999

REACTIONS (3)
  - Hypoaesthesia [Recovered/Resolved]
  - Sedation [Unknown]
  - Drug hypersensitivity [Unknown]
